FAERS Safety Report 7742014-X (Version None)
Quarter: 2011Q3

REPORT INFORMATION
  Report Type: 
  Country: None (occurrence: None)
  Receive Date: 20110907
  Receipt Date: 20110907
  Transmission Date: 20111222
  Serious: Yes (Other)
  Sender: FDA-Public Use
  Company Number: None

PATIENT
  Sex: Female
  Weight: 114.76 kg

DRUGS (1)
  1. CEFTRIAXONE [Suspect]
     Indication: ENDOCARDITIS
     Dosage: 2 GRAMS EVERY 24 HOURS IV
     Route: 042
     Dates: start: 20110406, end: 20110421

REACTIONS (1)
  - WHITE BLOOD CELL COUNT DECREASED [None]
